FAERS Safety Report 21800004 (Version 1)
Quarter: 2022Q4

REPORT INFORMATION
  Report Type: Spontaneous
  Country: CN (occurrence: CN)
  Receive Date: 20221230
  Receipt Date: 20221230
  Transmission Date: 20230113
  Serious: Yes (Hospitalization, Other)
  Sender: FDA-Public Use
  Company Number: None

PATIENT
  Age: 2 Year
  Sex: Male
  Weight: 13.5 kg

DRUGS (3)
  1. CYCLOPHOSPHAMIDE [Suspect]
     Active Substance: CYCLOPHOSPHAMIDE
     Indication: T-cell type acute leukaemia
     Dosage: 114 MG, ONCE IN 2 DAYS
     Route: 041
     Dates: start: 20221119, end: 20221121
  2. VINCRISTINE SULFATE [Suspect]
     Active Substance: VINCRISTINE SULFATE
     Indication: T-cell type acute leukaemia
     Dosage: 0.85 MG, ONCE IN 6 DAYS
     Route: 041
     Dates: start: 20221118, end: 20221123
  3. METHOTREXATE [Suspect]
     Active Substance: METHOTREXATE
     Indication: T-cell type acute leukaemia
     Dosage: 2860 MG, ONCE DAILY
     Route: 041
     Dates: start: 20221118, end: 20221118

REACTIONS (5)
  - Condition aggravated [Recovering/Resolving]
  - Anal ulcer [Unknown]
  - Myelosuppression [Recovering/Resolving]
  - Infection [Recovering/Resolving]
  - Agranulocytosis [Recovering/Resolving]

NARRATIVE: CASE EVENT DATE: 20221121
